FAERS Safety Report 8037008-3 (Version None)
Quarter: 2012Q1

REPORT INFORMATION
  Report Type: 
  Country: None (occurrence: None)
  Receive Date: 20120106
  Receipt Date: 20111226
  Transmission Date: 20120608
  Serious: Yes (Life-Threatening, Hospitalization)
  Sender: FDA-Public Use
  Company Number: 2012MA000057

PATIENT
  Age: 80 Year
  Sex: Male

DRUGS (12)
  1. METFORMIN HYDROCHLORIDE [Suspect]
     Indication: PRODUCT USED FOR UNKNOWN INDICATION
     Dosage: 1000 MG;QD;PO
     Route: 048
     Dates: end: 20111122
  2. AVODART [Suspect]
     Indication: PRODUCT USED FOR UNKNOWN INDICATION
     Dosage: ;PO
     Route: 048
     Dates: end: 20111122
  3. BEFIZAL (BEZAFIBRATE) [Suspect]
  4. VALSARTAN  AND HYDROCHLOROTHIAZIDE [Suspect]
     Indication: PRODUCT USED FOR UNKNOWN INDICATION
     Dosage: ;PO
     Route: 048
     Dates: end: 20111122
  5. ZOLPIDEM [Concomitant]
  6. HEXAQUINE (HEXAQUINE) [Suspect]
     Indication: PRODUCT USED FOR UNKNOWN INDICATION
     Dosage: ;PO
     Route: 048
     Dates: end: 20111122
  7. NEXEN (NIMESULIDE) [Suspect]
     Indication: PRODUCT USED FOR UNKNOWN INDICATION
     Dosage: ;PO
     Route: 048
     Dates: end: 20111122
  8. ACETAMINOPHEN [Concomitant]
  9. TRAMADOL HYDROCHLORIDE [Suspect]
     Indication: PRODUCT USED FOR UNKNOWN INDICATION
     Dosage: ;PO
     Route: 048
     Dates: end: 20111122
  10. CARVEDILOL [Concomitant]
  11. AMLODIPINE BESYLATE [Concomitant]
  12. MEDIATENSYL (URAPIDIL) [Suspect]
     Indication: PRODUCT USED FOR UNKNOWN INDICATION
     Dosage: ;PO
     Route: 048
     Dates: end: 20111122

REACTIONS (1)
  - ANAEMIA HAEMOLYTIC AUTOIMMUNE [None]
